FAERS Safety Report 10946385 (Version 1)
Quarter: 2015Q1

REPORT INFORMATION
  Report Type: Spontaneous
  Country: JP (occurrence: JP)
  Receive Date: 20150323
  Receipt Date: 20150323
  Transmission Date: 20150721
  Serious: Yes (Hospitalization)
  Sender: FDA-Public Use
  Company Number: JP-SA-2015SA032338

PATIENT
  Sex: Male

DRUGS (4)
  1. CALCIUM LEVOFOLINATE [Concomitant]
     Active Substance: LEVOLEUCOVORIN CALCIUM
     Dates: start: 201410, end: 201412
  2. VECTIBIX [Concomitant]
     Active Substance: PANITUMUMAB
     Dates: start: 201410, end: 201412
  3. ELPLAT [Suspect]
     Active Substance: OXALIPLATIN
     Indication: COLON CANCER
     Route: 041
     Dates: start: 201410, end: 201412
  4. 5-FU [Concomitant]
     Active Substance: FLUOROURACIL
     Dates: start: 201410, end: 201412

REACTIONS (1)
  - Miller Fisher syndrome [Recovered/Resolved]

NARRATIVE: CASE EVENT DATE: 201502
